FAERS Safety Report 4322455-3 (Version None)
Quarter: 2004Q1

REPORT INFORMATION
  Report Type: 
  Country: None (occurrence: None)
  Receive Date: 20040324
  Receipt Date: 20020709
  Transmission Date: 20041129
  Serious: Yes (Other)
  Sender: FDA-Public Use
  Company Number: 200217126US

PATIENT
  Sex: Male
  Weight: 93 kg

DRUGS (8)
  1. ARAVA [Suspect]
     Indication: RHEUMATOID ARTHRITIS
     Dates: start: 20020101, end: 20021001
  2. ENBREL [Suspect]
     Indication: RHEUMATOID ARTHRITIS
     Dates: start: 20011201
  3. PLAQUENIL [Suspect]
     Indication: RHEUMATOID ARTHRITIS
  4. PREDNISONE [Suspect]
     Indication: RHEUMATOID ARTHRITIS
     Dosage: DOSE: UNKNOWN
  5. PRILOSEC [Concomitant]
     Indication: GASTROOESOPHAGEAL REFLUX DISEASE
  6. VIOXX [Concomitant]
     Dosage: DOSE: UNKNOWN
  7. CELEBREX [Concomitant]
     Dosage: DOSE: UNKNOWN
  8. METHOTREXATE [Concomitant]
     Dosage: DOSE: UNKNOWN

REACTIONS (11)
  - ABSCESS NECK [None]
  - ANAEMIA [None]
  - ASTHENIA [None]
  - DRUG INEFFECTIVE [None]
  - FEELING ABNORMAL [None]
  - GASTROOESOPHAGEAL REFLUX DISEASE [None]
  - LARYNGITIS [None]
  - LUNG NEOPLASM MALIGNANT [None]
  - SMALL INTESTINE CARCINOMA [None]
  - SYSTEMIC LUPUS ERYTHEMATOSUS [None]
  - THROAT CANCER [None]
